FAERS Safety Report 21838304 (Version 1)
Quarter: 2023Q1

REPORT INFORMATION
  Report Type: Spontaneous
  Country: DE (occurrence: DE)
  Receive Date: 20230109
  Receipt Date: 20230109
  Transmission Date: 20230417
  Serious: Yes (Other)
  Sender: FDA-Public Use
  Company Number: DE-AMGEN-DEUSP2022194213

PATIENT
  Age: 37 Year
  Sex: Female

DRUGS (2)
  1. ADALIMUMAB [Suspect]
     Active Substance: ADALIMUMAB
     Indication: Pyoderma gangrenosum
     Dosage: UNK
     Route: 065
  2. USTEKINUMAB [Concomitant]
     Active Substance: USTEKINUMAB
     Indication: Pyoderma gangrenosum
     Dosage: UNK
     Route: 065

REACTIONS (4)
  - Gastrointestinal stoma complication [Recovered/Resolved]
  - Small intestinal obstruction [Recovered/Resolved]
  - Volvulus of small bowel [Recovered/Resolved]
  - Impaired quality of life [Unknown]

NARRATIVE: CASE EVENT DATE: 20200101
